FAERS Safety Report 11449441 (Version 5)
Quarter: 2016Q2

REPORT INFORMATION
  Report Type: Report from Study
  Country: DE (occurrence: DE)
  Receive Date: 20150903
  Receipt Date: 20160404
  Transmission Date: 20160815
  Serious: Yes (Death, Hospitalization)
  Sender: FDA-Public Use
  Company Number: DE-ROCHE-1612911

PATIENT
  Sex: Male

DRUGS (63)
  1. FILGRASTIM [Suspect]
     Active Substance: FILGRASTIM
     Dosage: LAST DOSE PRIOR TYO SAE: 21/AUG/2015
     Route: 058
     Dates: start: 20150819
  2. PREDNISOLONE. [Suspect]
     Active Substance: PREDNISOLONE
     Route: 048
     Dates: start: 20150929, end: 20151003
  3. PREDNISOLONE. [Suspect]
     Active Substance: PREDNISOLONE
     Route: 048
     Dates: start: 20151216, end: 20151220
  4. POTASSIUM CITRATE. [Concomitant]
     Active Substance: POTASSIUM CITRATE
     Indication: HYPOKALAEMIA
     Dosage: 1 TABLET
     Route: 048
     Dates: start: 20150718, end: 20150718
  5. ALLOPURINOL. [Concomitant]
     Active Substance: ALLOPURINOL
     Indication: HYPERURICAEMIA
     Route: 048
     Dates: start: 20150711, end: 20150722
  6. PANTOPRAZOLE [Concomitant]
     Active Substance: PANTOPRAZOLE SODIUM
     Route: 048
     Dates: start: 201508
  7. BISOPROLOL HEMIFUMARATE [Concomitant]
     Active Substance: BISOPROLOL FUMARATE
     Indication: HYPERTENSION
     Route: 048
     Dates: start: 20150711
  8. IBUPROFEN. [Concomitant]
     Active Substance: IBUPROFEN
     Indication: BONE PAIN
     Route: 048
     Dates: start: 20150720, end: 20150724
  9. FILGRASTIM [Suspect]
     Active Substance: FILGRASTIM
     Indication: B-CELL LYMPHOMA
     Route: 058
     Dates: start: 20150720
  10. FILGRASTIM [Suspect]
     Active Substance: FILGRASTIM
     Route: 058
     Dates: start: 20150904, end: 20150908
  11. FILGRASTIM [Suspect]
     Active Substance: FILGRASTIM
     Dosage: 48 MIU IU  (1,000,000 S)
     Route: 058
     Dates: start: 20150930, end: 20151004
  12. DOXORUBICIN [Suspect]
     Active Substance: DOXORUBICIN
     Dosage: DATE OF LAST DOSE PRIOR TO SAE: 29/SEP/2015
     Route: 042
     Dates: start: 20150929
  13. AMPHOTERICIN [Concomitant]
     Active Substance: AMPHOTERICIN B
     Indication: INFECTION PROPHYLAXIS
     Route: 048
     Dates: start: 20150711, end: 20150906
  14. KALIUM CHLORID [Concomitant]
     Indication: HYPOKALAEMIA
     Route: 048
     Dates: start: 20150724
  15. LEVOFLOXACINE [Concomitant]
     Active Substance: LEVOFLOXACIN
     Indication: INFECTION PROPHYLAXIS
     Route: 048
     Dates: start: 20150907
  16. CYCLOPHOSPHAMIDE. [Suspect]
     Active Substance: CYCLOPHOSPHAMIDE
     Dosage: LAST DOSE PRIOR TO SAE: 29/SEP/2015
     Route: 042
     Dates: start: 20150929
  17. VINCRISTINE [Suspect]
     Active Substance: VINCRISTINE
     Indication: B-CELL LYMPHOMA
     Dosage: DATE OF LAST DOSE PRIOR TO SAE: 17/JUL/2015
     Route: 042
     Dates: start: 20150717
  18. PREDNISOLONE. [Suspect]
     Active Substance: PREDNISOLONE
     Dosage: LAST DOSE PRIOR TO SAE: 14/AUG/2015
     Route: 048
     Dates: start: 20150814, end: 20150818
  19. PANTOPRAZOLE [Concomitant]
     Active Substance: PANTOPRAZOLE SODIUM
     Route: 048
     Dates: start: 20150711
  20. KALIUM CHLORID [Concomitant]
     Route: 048
     Dates: start: 20151204
  21. DOXORUBICIN [Suspect]
     Active Substance: DOXORUBICIN
     Dosage: DATE OF LAST DOSE PRIOR TO SAE: 02/SEP/2015
     Route: 042
     Dates: start: 20150902
  22. CHOLECALCIFEROL [Concomitant]
     Active Substance: CHOLECALCIFEROL
     Route: 048
  23. FLUCONAZOLE. [Concomitant]
     Active Substance: FLUCONAZOLE
     Indication: ORAL CANDIDIASIS
     Route: 048
     Dates: start: 20150717, end: 20150722
  24. CITRIC ACID [Concomitant]
     Active Substance: CITRIC ACID MONOHYDRATE
     Indication: HYPOKALAEMIA
     Dosage: 1 TABLET
     Route: 048
     Dates: start: 20150718, end: 20150718
  25. RITUXIMAB [Suspect]
     Active Substance: RITUXIMAB
     Dosage: LAST DOSE PRIOR TO SAE: 15/DEC/2015
     Route: 042
     Dates: start: 20160115, end: 20160115
  26. CYCLOPHOSPHAMIDE. [Suspect]
     Active Substance: CYCLOPHOSPHAMIDE
     Dosage: LAST DOSE PRIOR TO SAE: 14/AUG/2015
     Route: 042
     Dates: start: 20150814, end: 20150814
  27. CYCLOPHOSPHAMIDE. [Suspect]
     Active Substance: CYCLOPHOSPHAMIDE
     Dosage: LAST DOSE PRIOR TO SAE: 02/SEP/2015
     Route: 042
     Dates: start: 20150902
  28. DOXORUBICIN [Suspect]
     Active Substance: DOXORUBICIN
     Dosage: LAST DOSE PRIOR TO SAE: 16/DEC/2015
     Route: 042
     Dates: start: 20151216, end: 20151216
  29. PREDNISOLONE. [Suspect]
     Active Substance: PREDNISOLONE
     Indication: B-CELL LYMPHOMA
     Dosage: DATE OF LAST DOSE PRIOR TO SAE: 17/JUL/2015
     Route: 048
     Dates: start: 20150717
  30. PREDNISOLONE. [Concomitant]
     Active Substance: PREDNISOLONE
     Indication: PREMEDICATION
     Route: 048
     Dates: start: 20150711, end: 20150715
  31. POTASSIUM HYDROGEN CARBONATE [Concomitant]
     Indication: HYPOKALAEMIA
     Dosage: 1 TABLET
     Route: 048
     Dates: start: 20150718, end: 20150718
  32. KALIUM CHLORID [Concomitant]
     Route: 048
     Dates: start: 201508
  33. IBUPROFEN. [Concomitant]
     Active Substance: IBUPROFEN
     Route: 048
     Dates: start: 20150819, end: 20150821
  34. ENOXAPARIN SODIUM. [Concomitant]
     Active Substance: ENOXAPARIN SODIUM
     Route: 058
     Dates: start: 20151204
  35. RITUXIMAB [Suspect]
     Active Substance: RITUXIMAB
     Dosage: LAST DOSE PRIOR TO SAE: 13/AUG/2015
     Route: 042
     Dates: start: 20150813
  36. RITUXIMAB [Suspect]
     Active Substance: RITUXIMAB
     Dosage: LAST DOSE PRIOR TO SAE: 15/DEC/2015
     Route: 042
     Dates: start: 20151215
  37. FILGRASTIM [Suspect]
     Active Substance: FILGRASTIM
     Dosage: 48 MIU IU  (1,000,000 S)
     Route: 058
     Dates: start: 20150930, end: 20151223
  38. CYCLOPHOSPHAMIDE. [Suspect]
     Active Substance: CYCLOPHOSPHAMIDE
     Dosage: LAST DOSE PRIOR TO SAE: 16/DEC/2015
     Route: 042
     Dates: start: 20151216, end: 20151216
  39. VINCRISTINE [Suspect]
     Active Substance: VINCRISTINE
     Dosage: LAST DOSE PRIOR TO SAE: 03/SEP/2015
     Route: 042
     Dates: start: 20150903
  40. VINCRISTINE [Suspect]
     Active Substance: VINCRISTINE
     Dosage: LAST DOSE PRIOR TO SAE: 29/SEP/2015
     Route: 042
     Dates: start: 20150929
  41. PREDNISOLONE. [Suspect]
     Active Substance: PREDNISOLONE
     Route: 048
     Dates: start: 20150902, end: 20150906
  42. CLARITHROMYCIN. [Concomitant]
     Active Substance: CLARITHROMYCIN
     Indication: GASTRITIS
     Route: 048
     Dates: start: 20150711, end: 20150717
  43. BISOPROLOL HEMIFUMARATE [Concomitant]
     Active Substance: BISOPROLOL FUMARATE
     Dosage: FOR 100 DAYS
     Route: 048
     Dates: start: 201509, end: 20151209
  44. FUROSEMIDE. [Concomitant]
     Active Substance: FUROSEMIDE
     Indication: PROPHYLAXIS
     Route: 042
     Dates: start: 20150711, end: 20150715
  45. RITUXIMAB [Suspect]
     Active Substance: RITUXIMAB
     Dosage: LAST DOSE PRIOR TO SAE: 01/SEP/2015.
     Route: 042
     Dates: start: 20150901
  46. RITUXIMAB [Suspect]
     Active Substance: RITUXIMAB
     Dosage: LAST DOSE PRIOR TO SAE: 28/SEP/2015.
     Route: 042
     Dates: start: 20150928
  47. FILGRASTIM [Suspect]
     Active Substance: FILGRASTIM
     Route: 058
     Dates: start: 20151218, end: 20151222
  48. DOXORUBICIN [Suspect]
     Active Substance: DOXORUBICIN
     Indication: B-CELL LYMPHOMA
     Dosage: DATE OF LAST DOSE PRIOR TO SAE: 17/JUL/2015
     Route: 042
     Dates: start: 20150717
  49. DOXORUBICIN [Suspect]
     Active Substance: DOXORUBICIN
     Dosage: LAST DOSE PRIOR TO SAE: 14/AUG/2015
     Route: 042
     Dates: start: 20150814, end: 20150814
  50. AMPHOTERICIN [Concomitant]
     Active Substance: AMPHOTERICIN B
     Route: 048
     Dates: end: 20150818
  51. METRONIDAZOLE. [Concomitant]
     Active Substance: METRONIDAZOLE
     Indication: GASTRITIS
     Route: 048
     Dates: start: 20150711, end: 20150717
  52. FUROSEMIDE. [Concomitant]
     Active Substance: FUROSEMIDE
     Route: 042
     Dates: start: 20150716, end: 20150717
  53. CIPROFLOXACIN. [Concomitant]
     Active Substance: CIPROFLOXACIN
     Indication: INFECTION PROPHYLAXIS
     Route: 048
     Dates: start: 20150725, end: 20150725
  54. IBUPROFEN. [Concomitant]
     Active Substance: IBUPROFEN
     Route: 048
     Dates: start: 20150904, end: 20150908
  55. LEVOFLOXACINE [Concomitant]
     Active Substance: LEVOFLOXACIN
     Route: 048
     Dates: start: 20151004
  56. LEVOFLOXACINE [Concomitant]
     Active Substance: LEVOFLOXACIN
     Route: 048
     Dates: start: 20151204, end: 20151208
  57. ACETYLCYSTEINE. [Concomitant]
     Active Substance: ACETYLCYSTEINE
     Route: 048
     Dates: start: 20151204
  58. RITUXIMAB [Suspect]
     Active Substance: RITUXIMAB
     Indication: B-CELL LYMPHOMA
     Dosage: DATE OF LAST DOSE OF RITUXIMAB PRIOR TO SAE: 16/JUL/2015
     Route: 042
     Dates: start: 20150716
  59. CYCLOPHOSPHAMIDE. [Suspect]
     Active Substance: CYCLOPHOSPHAMIDE
     Indication: B-CELL LYMPHOMA
     Dosage: DATE OF LAST DOSE PRIOR TO SAE: 17/JUL/2015
     Route: 042
     Dates: start: 20150717
  60. VINCRISTINE [Suspect]
     Active Substance: VINCRISTINE
     Dosage: LAST DOSE PRIOR TO SAE: 14/AUG/2015
     Route: 042
     Dates: start: 20150814, end: 20150814
  61. VINCRISTINE [Suspect]
     Active Substance: VINCRISTINE
     Dosage: LAST DOSE PRIOR TO SAE: 16/DEC/2015
     Route: 042
     Dates: start: 20151216
  62. CHOLECALCIFEROL [Concomitant]
     Active Substance: CHOLECALCIFEROL
     Indication: VITAMIN SUPPLEMENTATION
     Route: 048
     Dates: start: 20150714
  63. CHOLECALCIFEROL [Concomitant]
     Active Substance: CHOLECALCIFEROL
     Route: 048
     Dates: start: 20150720

REACTIONS (13)
  - Sepsis [Not Recovered/Not Resolved]
  - Tumour lysis syndrome [Recovered/Resolved]
  - Pancytopenia [Recovered/Resolved]
  - Thrombocytopenia [Recovered/Resolved]
  - C-reactive protein increased [Not Recovered/Not Resolved]
  - Pneumonia [Recovered/Resolved]
  - Bronchitis [Recovered/Resolved]
  - Death [Fatal]
  - Agranulocytosis [Not Recovered/Not Resolved]
  - Leukopenia [Recovered/Resolved]
  - Sepsis [Recovered/Resolved]
  - Neutropenia [Recovered/Resolved]
  - Stomatitis [Recovered/Resolved]

NARRATIVE: CASE EVENT DATE: 20150718
